FAERS Safety Report 18314167 (Version 1)
Quarter: 2020Q3

REPORT INFORMATION
  Report Type: Spontaneous
  Country: JP (occurrence: JP)
  Receive Date: 20200925
  Receipt Date: 20200925
  Transmission Date: 20201103
  Serious: Yes (Other)
  Sender: FDA-Public Use
  Company Number: JP-PFIZER INC-2020367689

PATIENT
  Age: 78 Year
  Sex: Male

DRUGS (6)
  1. EURODIN [ESTAZOLAM] [Suspect]
     Active Substance: ESTAZOLAM
     Dosage: 4 MG, 1X/DAY (2 TABLETS BEFORE GOING TO BED)
     Route: 048
  2. DESYREL [Suspect]
     Active Substance: TRAZODONE HYDROCHLORIDE
     Dosage: 100 MG (2 TABLETS), DAILY
     Route: 048
  3. LEVOTOMIN [LEVOMEPROMAZINE MALEATE] [Suspect]
     Active Substance: LEVOMEPROMAZINE
     Dosage: 5 MG, 1X/DAY (1 TABLET EACH TIME BEFORE GOING TO BED)
     Route: 048
  4. XALATAN [Suspect]
     Active Substance: LATANOPROST
     Indication: GLAUCOMA
  5. BROMAZEPAM SANDOZ [Suspect]
     Active Substance: BROMAZEPAM
     Dosage: 8 MG, DAILY (1 TABLET IN THE MORNING, 1 TABLET AT NOON, 2 TABLETS BEFORE GOING TO BED)
     Route: 048
  6. EFFEXOR [Suspect]
     Active Substance: VENLAFAXINE HYDROCHLORIDE
     Dosage: 37.5 MG, 1X/DAY (IN THE MORNING)
     Route: 048

REACTIONS (2)
  - Hallucination, visual [Unknown]
  - Hallucination [Unknown]
